FAERS Safety Report 10112452 (Version 1)
Quarter: 2014Q2

REPORT INFORMATION
  Report Type: Report from Study
  Country: US (occurrence: US)
  Receive Date: 20140425
  Receipt Date: 20140425
  Transmission Date: 20141212
  Serious: Yes (Hospitalization)
  Sender: FDA-Public Use
  Company Number: US-ONYX-2014-0877

PATIENT
  Age: 81 Year
  Sex: Female
  Weight: 76.4 kg

DRUGS (4)
  1. CARFILZOMIB [Suspect]
     Indication: AMYLOIDOSIS
     Route: 042
     Dates: start: 20131219
  2. CARFILZOMIB [Suspect]
     Route: 042
     Dates: end: 20140313
  3. TORSEMIDE [Concomitant]
     Indication: PRODUCT USED FOR UNKNOWN INDICATION
  4. METOLAZONE [Concomitant]
     Indication: PRODUCT USED FOR UNKNOWN INDICATION

REACTIONS (1)
  - Restrictive cardiomyopathy [Recovered/Resolved]
